FAERS Safety Report 10671113 (Version 1)
Quarter: 2014Q4

REPORT INFORMATION
  Report Type: Spontaneous
  Country: JP (occurrence: None)
  Receive Date: 20141219
  Receipt Date: 20141219
  Transmission Date: 20150529
  Serious: Yes (Life-Threatening)
  Sender: FDA-Public Use
  Company Number: 2014JP000760

PATIENT
  Age: 66 Year
  Sex: Male

DRUGS (12)
  1. RISUMIC (AMEZINIUM METILSULFATE) [Suspect]
     Active Substance: AMEZINIUM METILSULFATE
     Indication: BLOOD PRESSURE DECREASED
     Route: 048
     Dates: start: 20141001
  2. MYSLEE (ZOLPIDEM TARTRATE) [Concomitant]
  3. TAKEPRON (LANSOPRAZOLE) [Concomitant]
     Active Substance: LANSOPRAZOLE
  4. OPALMON (LIMAPROST ALFADEX) [Concomitant]
  5. BIOFERMIN (LACTOMIN) [Concomitant]
  6. CALTAN (CALCIUM CARBONATE) [Concomitant]
  7. RIONA (FERRIC CITRATE) FILM-COATED TABLET [Suspect]
     Active Substance: FERRIC CITRATE ANHYDROUS
     Indication: HYPERPHOSPHATAEMIA
     Route: 048
  8. PURSENNIDE (SENNOSIDE A+B) [Concomitant]
  9. ALFAROL [Concomitant]
     Active Substance: ALFACALCIDOL
  10. ARGAMATE (CALCIUM POLYSTYRENE SULFONATE) [Concomitant]
  11. L CARTIN (LEVOCARNITINE HYDROCHLORIDE) [Concomitant]
  12. VOLTAREN [Concomitant]
     Active Substance: DICLOFENAC SODIUM

REACTIONS (1)
  - Blood pressure decreased [None]

NARRATIVE: CASE EVENT DATE: 20141001
